FAERS Safety Report 22384335 (Version 1)
Quarter: 2023Q2

REPORT INFORMATION
  Report Type: Spontaneous
  Country: CN (occurrence: CN)
  Receive Date: 20230530
  Receipt Date: 20230530
  Transmission Date: 20230722
  Serious: Yes (Life-Threatening, Hospitalization, Other)
  Sender: FDA-Public Use
  Company Number: CN-DSJP-DSJ-2023-121209

PATIENT
  Sex: Female
  Weight: 53.5 kg

DRUGS (1)
  1. EDOXABAN [Suspect]
     Active Substance: EDOXABAN
     Indication: Venous thrombosis limb
     Dosage: 30 MG, QD
     Route: 048
     Dates: start: 20230213, end: 20230511

REACTIONS (7)
  - Respiratory failure [Recovering/Resolving]
  - Pulmonary haemorrhage [Recovering/Resolving]
  - Pain in extremity [Unknown]
  - Skin discolouration [Unknown]
  - Anaemia [Unknown]
  - Somnolence [Unknown]
  - Illness [Unknown]

NARRATIVE: CASE EVENT DATE: 20230101
